FAERS Safety Report 17336786 (Version 10)
Quarter: 2023Q4

REPORT INFORMATION
  Report Type: Report from Study
  Country: JP (occurrence: JP)
  Receive Date: 20200129
  Receipt Date: 20231207
  Transmission Date: 20240110
  Serious: Yes (Hospitalization, Other)
  Sender: FDA-Public Use
  Company Number: NVSJ2020JP000994

PATIENT
  Age: 15 Year
  Sex: Female
  Weight: 141 kg

DRUGS (4)
  1. KYMRIAH [Suspect]
     Active Substance: TISAGENLECLEUCEL
     Indication: Acute lymphocytic leukaemia recurrent
     Dosage: FULL DOSE ADMINISTRATION, TOTAL NUMBER OF CELLS ADMINISTERED: 0.49X10^9
     Route: 041
     Dates: start: 20191209, end: 20191209
  2. CYTARABINE [Concomitant]
     Active Substance: CYTARABINE
     Indication: Acute lymphocytic leukaemia recurrent
     Dosage: LOW DOSE
     Route: 065
  3. FLUDARABINE PHOSPHATE [Concomitant]
     Active Substance: FLUDARABINE PHOSPHATE
     Indication: Lymphodepletion
     Dosage: 120 MG/M2
     Route: 065
     Dates: start: 20191204
  4. CYCLOPHOSPHAMIDE [Concomitant]
     Active Substance: CYCLOPHOSPHAMIDE
     Indication: Lymphodepletion
     Dosage: 1000 MG/M2
     Route: 065
     Dates: start: 20191204

REACTIONS (23)
  - Leukoencephalopathy [Recovered/Resolved with Sequelae]
  - Concomitant disease aggravated [Recovered/Resolved with Sequelae]
  - Neurological symptom [Unknown]
  - Mobility decreased [Recovering/Resolving]
  - Tremor [Recovering/Resolving]
  - Myoclonus [Unknown]
  - Hypertonia [Unknown]
  - Hypokinesia [Unknown]
  - Dysphagia [Unknown]
  - Leukopenia [Recovering/Resolving]
  - Thrombocytopenia [Recovering/Resolving]
  - Erythropenia [Recovering/Resolving]
  - Cytokine release syndrome [Recovered/Resolved]
  - Pyrexia [Recovered/Resolved]
  - Hypoxia [Unknown]
  - Hypogammaglobulinaemia [Not Recovered/Not Resolved]
  - Immune effector cell-associated neurotoxicity syndrome [Not Recovered/Not Resolved]
  - Depressed level of consciousness [Unknown]
  - Language disorder [Unknown]
  - Paresis [Unknown]
  - Lymphocyte count decreased [Unknown]
  - Cytopenia [Unknown]
  - Bone marrow failure [Unknown]

NARRATIVE: CASE EVENT DATE: 20191211
